FAERS Safety Report 6250893-0 (Version None)
Quarter: 2009Q2

REPORT INFORMATION
  Report Type: 
  Country: None (occurrence: None)
  Receive Date: 20090630
  Receipt Date: 20090510
  Transmission Date: 20091009
  Serious: No
  Sender: FDA-Public Use
  Company Number: US-BAUSCH-2009BL002253

PATIENT
  Age: 29 Year
  Sex: Female

DRUGS (1)
  1. ALAWAY [Suspect]
     Indication: SEASONAL ALLERGY
     Route: 047
     Dates: start: 20090427, end: 20090427

REACTIONS (1)
  - EYE IRRITATION [None]
